FAERS Safety Report 5685105-X (Version None)
Quarter: 2008Q1

REPORT INFORMATION
  Report Type: 
  Country: None (occurrence: None)
  Receive Date: 20080327
  Receipt Date: 20080314
  Transmission Date: 20080703
  Serious: Yes (Hospitalization)
  Sender: FDA-Public Use
  Company Number: 2008PV034134

PATIENT
  Sex: Female
  Weight: 136.0791 kg

DRUGS (2)
  1. SYMLIN [Suspect]
     Indication: TYPE 2 DIABETES MELLITUS
     Dosage: SC
     Route: 058
     Dates: start: 20070601
  2. ACTOS [Suspect]
     Indication: TYPE 2 DIABETES MELLITUS

REACTIONS (4)
  - ASCITES [None]
  - LIVEDO RETICULARIS [None]
  - RIGHT VENTRICULAR FAILURE [None]
  - WEIGHT INCREASED [None]
